FAERS Safety Report 9223694 (Version 1)
Quarter: 2013Q2

REPORT INFORMATION
  Report Type: Other
  Country: GB (occurrence: GB)
  Receive Date: 20130410
  Receipt Date: 20130410
  Transmission Date: 20140414
  Serious: Yes (Hospitalization)
  Sender: FDA-Public Use
  Company Number: GB-TARO PHARMACEUTICALS U.S.A., INC-2013SUN00449

PATIENT
  Sex: 0

DRUGS (11)
  1. ETODOLAC EXTENDED-RELEASE TABLETS, 600 MG [Suspect]
     Indication: RHEUMATOID ARTHRITIS
     Dosage: 600 MG, OD
     Route: 048
  2. CIMZIA [Suspect]
     Indication: RHEUMATOID ARTHRITIS
     Dosage: 200 MG ONCE IN TWO WEEKS
     Route: 058
     Dates: start: 2012
  3. ATORVASTATIN CALCIUM [Concomitant]
  4. DOCUSATE [Concomitant]
  5. HUMATROPE [Concomitant]
  6. HYDROCORTISONE [Concomitant]
  7. LEVOTHYROXINE [Concomitant]
  8. LISINOPRIL [Concomitant]
  9. METFORMIN [Concomitant]
  10. METHOTREXATE [Concomitant]
  11. RANITIDINE [Concomitant]

REACTIONS (2)
  - Acute coronary syndrome [Recovered/Resolved]
  - Chest pain [Recovered/Resolved]
